FAERS Safety Report 5491782-9 (Version None)
Quarter: 2007Q4

REPORT INFORMATION
  Report Type: 
  Country: None (occurrence: None)
  Receive Date: 20071019
  Receipt Date: 20071019
  Transmission Date: 20080405
  Serious: Yes (Hospitalization)
  Sender: FDA-Public Use
  Company Number: None

PATIENT
  Age: 25 Year
  Sex: Female

DRUGS (1)
  1. VORICONAZOLE [Suspect]
     Dosage: 200MG  BID  ORAL
     Route: 048
     Dates: start: 20070206, end: 20070312

REACTIONS (4)
  - CELLULITIS [None]
  - LIVER FUNCTION TEST ABNORMAL [None]
  - VISION BLURRED [None]
  - VISUAL DISTURBANCE [None]
